FAERS Safety Report 10259834 (Version 2)
Quarter: 2014Q3

REPORT INFORMATION
  Report Type: Spontaneous
  Country: US (occurrence: US)
  Receive Date: 20140625
  Receipt Date: 20140708
  Transmission Date: 20150326
  Serious: Yes (Hospitalization)
  Sender: FDA-Public Use
  Company Number: US-GLAXOSMITHKLINE-A1077686A

PATIENT
  Age: 68 Year
  Sex: Female

DRUGS (4)
  1. PROAIR HFA [Concomitant]
     Active Substance: ALBUTEROL SULFATE
  2. TRAMADOL [Concomitant]
     Active Substance: TRAMADOL
  3. PREDNISONE. [Concomitant]
     Active Substance: PREDNISONE
  4. FLOVENT [Suspect]
     Active Substance: FLUTICASONE PROPIONATE
     Indication: ASTHMA
     Dosage: 1PUFF TWICE PER DAY
     Route: 055

REACTIONS (11)
  - Pain [Unknown]
  - Osteoporosis [Recovering/Resolving]
  - Nervousness [Recovering/Resolving]
  - Back pain [Unknown]
  - Vertebroplasty [Recovering/Resolving]
  - Insomnia [Recovering/Resolving]
  - Amnesia [Recovering/Resolving]
  - Spinal fracture [Recovering/Resolving]
  - Walking aid user [Recovering/Resolving]
  - Fall [Recovering/Resolving]
  - Malaise [Recovering/Resolving]
